FAERS Safety Report 25052763 (Version 2)
Quarter: 2025Q1

REPORT INFORMATION
  Report Type: Spontaneous
  Country: US (occurrence: US)
  Receive Date: 20250307
  Receipt Date: 20250307
  Transmission Date: 20250409
  Serious: No
  Sender: SANOFI AVENTIS
  Company Number: US-SA-2025SA060392

PATIENT
  Sex: Female
  Weight: 102.27 kg

DRUGS (4)
  1. DUPIXENT [Suspect]
     Active Substance: DUPILUMAB
     Indication: Dermatitis atopic
     Dosage: 300 MG, QOW
     Route: 058
  2. DIAZEPAM [Concomitant]
     Active Substance: DIAZEPAM
  3. HYDROCODONE BITARTRATE\IBUPROFEN [Concomitant]
     Active Substance: HYDROCODONE BITARTRATE\IBUPROFEN
  4. LINZESS [Concomitant]
     Active Substance: LINACLOTIDE

REACTIONS (5)
  - Ulcer [Unknown]
  - Dermatitis atopic [Unknown]
  - Accidental exposure to product [Unknown]
  - Exposure via skin contact [Unknown]
  - Device operational issue [Unknown]
